FAERS Safety Report 9366661 (Version 2)
Quarter: 2013Q4

REPORT INFORMATION
  Report Type: Spontaneous
  Country: GB (occurrence: GB)
  Receive Date: 20130625
  Receipt Date: 20131014
  Transmission Date: 20140711
  Serious: Yes (Life-Threatening, Hospitalization, Disabling, Other)
  Sender: FDA-Public Use
  Company Number: GB-PFIZER INC-2013184490

PATIENT
  Sex: Female
  Weight: 52 kg

DRUGS (5)
  1. EXEMESTANE [Suspect]
     Indication: BREAST CANCER METASTATIC
     Dosage: 25 MG, DAILY
     Route: 048
     Dates: start: 20130205, end: 20130514
  2. EVEROLIMUS [Suspect]
     Indication: BREAST CANCER METASTATIC
     Dosage: 5 MG, DAILY
     Route: 048
     Dates: start: 20130205, end: 20130514
  3. ZOMETA [Suspect]
     Dosage: 4 MG, DAILY
     Route: 042
     Dates: start: 20130305
  4. ZOMETA [Suspect]
     Dosage: 4 MG, DAILY
     Route: 042
     Dates: start: 20130402
  5. ZOMETA [Suspect]
     Dosage: 4 MG, DAILY
     Route: 042
     Dates: start: 20130430

REACTIONS (11)
  - Renal failure acute [Recovered/Resolved]
  - Blood potassium increased [Recovered/Resolved]
  - Blood sodium decreased [Recovered/Resolved]
  - Blood urea increased [Recovered/Resolved]
  - Blood creatinine increased [Recovered/Resolved]
  - Blood pressure systolic decreased [Unknown]
  - Urine output decreased [Recovered/Resolved]
  - Dehydration [Unknown]
  - Diarrhoea [Unknown]
  - Malaise [Unknown]
  - Hypophagia [Unknown]
